FAERS Safety Report 23492281 (Version 1)
Quarter: 2024Q1

REPORT INFORMATION
  Report Type: Spontaneous
  Country: US (occurrence: US)
  Receive Date: 20240207
  Receipt Date: 20240207
  Transmission Date: 20240410
  Serious: Yes (Other)
  Sender: FDA-Public Use
  Company Number: US-CADILA HEALTHCARE LIMITED-US-ZYDUS-102953

PATIENT

DRUGS (6)
  1. GLYCOPYRROLATE [Suspect]
     Active Substance: GLYCOPYRROLATE
     Indication: Vaginal discharge
     Dosage: 1 MILLIGRAM TWICE A DAY
     Route: 065
  2. GLYCOPYRROLATE [Suspect]
     Active Substance: GLYCOPYRROLATE
     Dosage: 4 MILLIGRAM TWICE PER DAY
     Route: 048
  3. GLYCOPYRROLATE [Suspect]
     Active Substance: GLYCOPYRROLATE
     Dosage: 2 MILLIGRAM TWICE DAILY
     Route: 065
  4. GLYCOPYRROLATE [Suspect]
     Active Substance: GLYCOPYRROLATE
     Dosage: 2 MILLIGRAM ONLY AS NEEDED, TWO OR THREE TIMES PER MONTH
     Route: 065
  5. OXYBUTYNIN CHLORIDE [Suspect]
     Active Substance: OXYBUTYNIN CHLORIDE
     Indication: Vaginal discharge
     Dosage: 2.5 MILLIGRAM DAILY
     Route: 065
  6. OXYBUTYNIN CHLORIDE [Suspect]
     Active Substance: OXYBUTYNIN CHLORIDE
     Dosage: 5 MILLIGRAM TWICE DAILY
     Route: 065

REACTIONS (5)
  - Dry eye [Recovering/Resolving]
  - Dry mouth [Recovering/Resolving]
  - Constipation [Recovering/Resolving]
  - Drug intolerance [Unknown]
  - Off label use [Unknown]
